FAERS Safety Report 4555889-2 (Version None)
Quarter: 2005Q1

REPORT INFORMATION
  Report Type: 
  Country: None (occurrence: None)
  Receive Date: 20050119
  Receipt Date: 20041216
  Transmission Date: 20050727
  Serious: Yes (Other)
  Sender: FDA-Public Use
  Company Number: JP-ROCHE-389708

PATIENT
  Age: 29 Year
  Sex: Female

DRUGS (5)
  1. TAMIFLU [Suspect]
     Indication: INFLUENZA
     Route: 048
     Dates: start: 20041207, end: 20041209
  2. PL [Concomitant]
     Route: 048
     Dates: start: 20041207
  3. BIOFERMIN [Concomitant]
     Route: 048
     Dates: start: 20041207
  4. TAKEPRON [Concomitant]
     Route: 048
     Dates: start: 20041207
  5. PROMAC [Concomitant]
     Route: 048
     Dates: start: 20041207

REACTIONS (1)
  - ANAPHYLACTIC REACTION [None]
